FAERS Safety Report 6441909 (Version 25)
Quarter: 2014Q3

REPORT INFORMATION
  Report Type: Spontaneous
  Country: US (occurrence: US)
  Receive Date: 20071015
  Receipt Date: 20140821
  Transmission Date: 20150326
  Serious: Yes (Other)
  Sender: FDA-Public Use
  Company Number: PHEH2007US13325

PATIENT
  Age: 60 Year
  Sex: Female
  Weight: 72.56 kg

DRUGS (38)
  1. AMOXICILLIN. [Concomitant]
     Active Substance: AMOXICILLIN
     Dosage: 500 MG, UNK
  2. ADRIAMYCIN [Concomitant]
     Active Substance: DOXORUBICIN HYDROCHLORIDE
     Route: 041
  3. CYTOXAN [Concomitant]
     Active Substance: CYCLOPHOSPHAMIDE
     Route: 041
  4. LEVAQUIN [Concomitant]
     Active Substance: LEVOFLOXACIN
  5. HUMIBID [Concomitant]
     Active Substance: GUAIFENESIN
  6. HYDROCHLOROTHIAZIDE. [Concomitant]
     Active Substance: HYDROCHLOROTHIAZIDE
  7. ALLEGRA [Concomitant]
     Active Substance: FEXOFENADINE HYDROCHLORIDE
  8. AROMASIN [Concomitant]
     Active Substance: EXEMESTANE
  9. COZAAR [Concomitant]
     Active Substance: LOSARTAN POTASSIUM
     Dosage: 25 MG, UNK
  10. LORAZEPAM. [Concomitant]
     Active Substance: LORAZEPAM
     Dosage: 5 MG, PRN
  11. TAXOL [Concomitant]
     Active Substance: PACLITAXEL
     Route: 041
  12. VALTREX [Concomitant]
     Active Substance: VALACYCLOVIR HYDROCHLORIDE
     Route: 048
  13. ABRAXANE [Concomitant]
     Active Substance: PACLITAXEL
     Dosage: 177 MG, UNK
     Route: 041
  14. DURATUSS [Concomitant]
     Active Substance: GUAIFENESIN\PSEUDOEPHEDRINE HYDROCHLORIDE
  15. ZOCOR ^DIECKMANN^ [Concomitant]
     Dosage: 40 MG, QD
  16. PENICILLIN VK [Concomitant]
     Active Substance: PENICILLIN V POTASSIUM
     Dosage: 500 MG, UNK
     Dates: end: 20070529
  17. PERIDEX [Concomitant]
     Active Substance: CHLORHEXIDINE GLUCONATE
  18. DECADRON [Concomitant]
     Active Substance: DEXAMETHASONE
     Dosage: 10 MG, UNK
     Route: 041
  19. GEMZAR [Concomitant]
     Active Substance: GEMCITABINE HYDROCHLORIDE
     Dosage: 1400 MG, UNK
     Route: 041
  20. ROBITUSSIN (GUAIFENESIN) [Concomitant]
     Active Substance: GUAIFENESIN
  21. EFFEXOR [Concomitant]
     Active Substance: VENLAFAXINE HYDROCHLORIDE
  22. HERCEPTIN [Concomitant]
     Active Substance: TRASTUZUMAB
  23. CARVEDILOL. [Concomitant]
     Active Substance: CARVEDILOL
     Dosage: 3.125 MG, UNK
  24. FLAGYL [Concomitant]
     Active Substance: METRONIDAZOLE\METRONIDAZOLE HYDROCHLORIDE
     Dosage: 500 MG, QD
     Dates: start: 20061220, end: 20070529
  25. ALOXI [Concomitant]
     Active Substance: PALONOSETRON HYDROCHLORIDE
     Dosage: 0.25 MG, UNK
     Route: 041
  26. FLONASE [Concomitant]
     Active Substance: FLUTICASONE PROPIONATE
  27. MULTIVITAMIN ^LAPPE^ [Concomitant]
     Active Substance: VITAMINS
  28. LISINOPRIL. [Concomitant]
     Active Substance: LISINOPRIL
     Dosage: 10 MG, QD
  29. TAMOXIFEN [Concomitant]
     Active Substance: TAMOXIFEN
  30. ZOMETA [Suspect]
     Active Substance: ZOLEDRONIC ACID
     Dosage: UNK UKN, UNK
     Route: 042
     Dates: start: 20050209
  31. AREDIA [Suspect]
     Active Substance: PAMIDRONATE DISODIUM
     Dosage: 90 MG, QW3
     Route: 042
     Dates: start: 20000912, end: 200601
  32. DOXYCYCLINE. [Concomitant]
     Active Substance: DOXYCYCLINE
     Dates: start: 20070529
  33. XELODA [Concomitant]
     Active Substance: CAPECITABINE
     Dosage: 500 MG, UNK
  34. AUGMENTIN [Concomitant]
     Active Substance: AMOXICILLIN\CLAVULANATE POTASSIUM
  35. CEFZIL [Concomitant]
     Active Substance: CEFPROZIL
  36. FUROSEMIDE. [Concomitant]
     Active Substance: FUROSEMIDE
     Dosage: 20 MG, UNK
  37. METRONIDAZOLE. [Concomitant]
     Active Substance: METRONIDAZOLE
     Dosage: 500 MG, UNK
  38. ZESTRIL [Concomitant]
     Active Substance: LISINOPRIL

REACTIONS (89)
  - Metastases to liver [Unknown]
  - Pain [Unknown]
  - Tooth abscess [Unknown]
  - Herpes zoster [Unknown]
  - Deafness [Unknown]
  - Gait disturbance [Unknown]
  - Onychomycosis [Unknown]
  - Intervertebral disc protrusion [Unknown]
  - Bone lesion [Unknown]
  - Osteosclerosis [Unknown]
  - Dental caries [Unknown]
  - Emotional distress [Unknown]
  - Dental fistula [Unknown]
  - Cardiac murmur [Unknown]
  - Nephrolithiasis [Unknown]
  - Bursitis [Unknown]
  - Lumbar spinal stenosis [Unknown]
  - Aortic arteriosclerosis [Unknown]
  - Back pain [Unknown]
  - Chest pain [Unknown]
  - Metastases to spine [Unknown]
  - White matter lesion [Unknown]
  - Osteonecrosis [Unknown]
  - Eczema [Unknown]
  - Arthralgia [Unknown]
  - Groin pain [Unknown]
  - Bone disorder [Unknown]
  - Pericardial effusion [Unknown]
  - Hypertension [Unknown]
  - Uterine leiomyoma [Recovering/Resolving]
  - Ingrowing nail [Unknown]
  - Cataract [Unknown]
  - Renal cyst [Unknown]
  - Breast disorder [Unknown]
  - Metastases to bone [Unknown]
  - Bone pain [Unknown]
  - Primary sequestrum [Unknown]
  - Oral disorder [Unknown]
  - Abscess rupture [Unknown]
  - Injury [Unknown]
  - Synovial disorder [Unknown]
  - Hepatic cyst [Unknown]
  - Ear pain [Unknown]
  - Haemorrhoids [Unknown]
  - Abscess limb [Unknown]
  - Spinal compression fracture [Unknown]
  - Hypothalamo-pituitary disorder [Unknown]
  - Atrophy [Unknown]
  - Paraesthesia [Unknown]
  - Infection [Unknown]
  - Anxiety [Unknown]
  - Purulent discharge [Unknown]
  - Swelling face [Unknown]
  - Overdose [Unknown]
  - Cardiomyopathy [Unknown]
  - Spinal osteoarthritis [Unknown]
  - Ecchymosis [Unknown]
  - Deformity [Unknown]
  - Diarrhoea [Unknown]
  - Hirsutism [Unknown]
  - Osteitis [Unknown]
  - Chondromalacia [Unknown]
  - Large intestine polyp [Unknown]
  - Diverticulum [Unknown]
  - Aortic calcification [Unknown]
  - Rectal polyp [Unknown]
  - Oral pain [Unknown]
  - Vertebral lesion [Unknown]
  - Tooth fracture [Unknown]
  - Osteonecrosis of jaw [Unknown]
  - Mouth haemorrhage [Unknown]
  - Pain in jaw [Unknown]
  - Disability [Unknown]
  - Cardiac valve disease [Unknown]
  - Lymphadenopathy [Unknown]
  - Atrophic vulvovaginitis [Unknown]
  - Cholelithiasis [Unknown]
  - Ventricular hypokinesia [Unknown]
  - Pain in extremity [Unknown]
  - Tricuspid valve incompetence [Unknown]
  - Extradural neoplasm [Unknown]
  - Skin exfoliation [Unknown]
  - Loose tooth [Unknown]
  - Hypoaesthesia [Unknown]
  - Left ventricular dysfunction [Unknown]
  - Pharyngitis [Unknown]
  - Hyperlipidaemia [Unknown]
  - Ear infection [Unknown]
  - Malignant neoplasm progression [Unknown]

NARRATIVE: CASE EVENT DATE: 20060908
